FAERS Safety Report 7545838-7 (Version None)
Quarter: 2011Q2

REPORT INFORMATION
  Report Type: 
  Country: None (occurrence: None)
  Receive Date: 20110613
  Receipt Date: 20110613
  Transmission Date: 20111010
  Serious: Yes (Life-Threatening, Disabling)
  Sender: FDA-Public Use
  Company Number: None

PATIENT
  Age: 63 Year
  Sex: Female
  Weight: 86.1834 kg

DRUGS (1)
  1. SIMVASTATIN [Suspect]
     Indication: BLOOD CHOLESTEROL ABNORMAL
     Dosage: 1 TABLET DAILY
     Dates: start: 20100101, end: 20110429

REACTIONS (6)
  - MUSCLE FATIGUE [None]
  - MYALGIA [None]
  - OEDEMA PERIPHERAL [None]
  - TENDON PAIN [None]
  - PAIN [None]
  - CHOLESTEROSIS [None]
